FAERS Safety Report 15846251 (Version 3)
Quarter: 2019Q1

REPORT INFORMATION
  Report Type: Spontaneous
  Country: BE (occurrence: BE)
  Receive Date: 20190120
  Receipt Date: 20190214
  Transmission Date: 20190417
  Serious: Yes (Life-Threatening, Hospitalization, Other)
  Sender: FDA-Public Use
  Company Number: PHHY2019BE007093

PATIENT
  Age: 57 Year
  Sex: Female

DRUGS (3)
  1. PANTOPRAZOLE [Suspect]
     Active Substance: PANTOPRAZOLE
     Indication: PRODUCT USED FOR UNKNOWN INDICATION
     Dosage: UNK
     Route: 065
  2. PROLIA [Suspect]
     Active Substance: DENOSUMAB
     Indication: OSTEOPOROSIS
     Dosage: UNK
     Route: 065
  3. VITAMIN D [Concomitant]
     Active Substance: CHOLECALCIFEROL
     Indication: PRODUCT USED FOR UNKNOWN INDICATION
     Dosage: UNK
     Route: 065

REACTIONS (8)
  - Hypomagnesaemia [Unknown]
  - Tetany [Recovered/Resolved]
  - Hypokalaemia [Unknown]
  - Vitamin D decreased [Unknown]
  - Muscle spasms [Recovering/Resolving]
  - Hypocalcaemia [Recovering/Resolving]
  - Hypophosphataemia [Unknown]
  - Hyperparathyroidism secondary [Unknown]
